FAERS Safety Report 17182306 (Version 1)
Quarter: 2019Q4

REPORT INFORMATION
  Report Type: Spontaneous
  Country: US (occurrence: US)
  Receive Date: 20191126
  Receipt Date: 20191126
  Transmission Date: 20200122
  Serious: No
  Sender: FDA-Public Use
  Company Number: None

PATIENT
  Age: 55 Year
  Sex: Female

DRUGS (7)
  1. LEVOTHYROXINE. [Concomitant]
     Active Substance: LEVOTHYROXINE
  2. ALPRAZOLAM. [Concomitant]
     Active Substance: ALPRAZOLAM
  3. VITAMIN D3 [Concomitant]
     Active Substance: CHOLECALCIFEROL
  4. OXYCODONE [Concomitant]
     Active Substance: OXYCODONE
  5. MULTI VITAMIN [Concomitant]
     Active Substance: VITAMINS
  6. QUETIAPINE (GENERIC FOR SEROQUEL) [Suspect]
     Active Substance: QUETIAPINE
     Indication: DRUG THERAPY
     Dosage: ?          QUANTITY:1 PILL;?
     Route: 048
  7. METCOLOPRAM [Concomitant]

REACTIONS (2)
  - Sleep terror [None]
  - Hallucination, visual [None]

NARRATIVE: CASE EVENT DATE: 20190620
